FAERS Safety Report 24789054 (Version 1)
Quarter: 2024Q4

REPORT INFORMATION
  Report Type: Spontaneous
  Country: JP (occurrence: None)
  Receive Date: 20241230
  Receipt Date: 20241230
  Transmission Date: 20250115
  Serious: Yes (Other)
  Sender: ALLEGIS PHARMACEUTICALS
  Company Number: JP-Allegis Pharmaceuticals, LLC-APL202412-000151

PATIENT
  Sex: Female

DRUGS (7)
  1. AZATHIOPRINE [Suspect]
     Active Substance: AZATHIOPRINE
     Indication: Autoimmune hepatitis
  2. AZATHIOPRINE [Suspect]
     Active Substance: AZATHIOPRINE
  3. AZATHIOPRINE [Suspect]
     Active Substance: AZATHIOPRINE
  4. AZATHIOPRINE [Suspect]
     Active Substance: AZATHIOPRINE
  5. PREDNISOLONE [Suspect]
     Active Substance: PREDNISOLONE
     Indication: Autoimmune hepatitis
  6. PREDNISOLONE [Suspect]
     Active Substance: PREDNISOLONE
  7. PREDNISOLONE [Suspect]
     Active Substance: PREDNISOLONE

REACTIONS (2)
  - Cholestasis [Recovered/Resolved]
  - Product use in unapproved indication [Unknown]
